FAERS Safety Report 18744920 (Version 1)
Quarter: 2021Q1

REPORT INFORMATION
  Report Type: Spontaneous
  Country: JP (occurrence: JP)
  Receive Date: 20210115
  Receipt Date: 20210115
  Transmission Date: 20210419
  Serious: Yes (Life-Threatening, Hospitalization, Other)
  Sender: FDA-Public Use
  Company Number: JP-STRIDES ARCOLAB LIMITED-2021SP000485

PATIENT
  Age: 73 Year
  Sex: Male

DRUGS (2)
  1. METHOTREXATE. [Suspect]
     Active Substance: METHOTREXATE
     Indication: POLYMYALGIA RHEUMATICA
     Dosage: 2 MILLIGRAM PER WEEK
     Route: 065
  2. PREDNISOLONE. [Suspect]
     Active Substance: PREDNISOLONE
     Indication: POLYMYALGIA RHEUMATICA
     Dosage: 5 MILLIGRAM PER DAY
     Route: 065

REACTIONS (4)
  - Mycobacterial infection [Recovered/Resolved]
  - Bronchial polyp [Recovered/Resolved]
  - Primary immunodeficiency syndrome [Recovered/Resolved]
  - Atelectasis [Recovered/Resolved]
